FAERS Safety Report 8040696-9 (Version None)
Quarter: 2012Q1

REPORT INFORMATION
  Report Type: 
  Country: None (occurrence: None)
  Receive Date: 20120111
  Receipt Date: 20111229
  Transmission Date: 20120608
  Serious: No
  Sender: FDA-Public Use
  Company Number: US-AMGEN-USASP2011059559

PATIENT
  Age: 67 Year
  Sex: Female
  Weight: 106.1 kg

DRUGS (28)
  1. CALCIUM +D                         /00188401/ [Concomitant]
     Dosage: UNK
  2. PREDNISONE TAB [Concomitant]
     Dosage: 20 MG, UNK
  3. ENBREL [Suspect]
     Indication: JUVENILE ARTHRITIS
  4. FISH OIL [Concomitant]
     Dosage: 1000 MG, BID
  5. ENBREL [Suspect]
     Indication: RHEUMATOID ARTHRITIS
     Dosage: 50 MG, QWK
     Route: 058
     Dates: start: 20111017, end: 20111107
  6. IMODIUM A-D [Concomitant]
     Dosage: 2 MG, UNK
  7. LEVOXYL [Concomitant]
     Dosage: 137 MUG, QD
  8. RANITIDINE HCL [Concomitant]
     Dosage: 150 MG, TID
  9. CRESTOR [Concomitant]
     Dosage: 10 MG, UNK
  10. DETROL LA [Concomitant]
     Dosage: 4 MG, QD
  11. POTASSIUM CHLORIDE [Concomitant]
     Dosage: 20 MEQ, QD
  12. VICODIN [Concomitant]
     Dosage: UNK UNK, Q6H
  13. VITAMIN D [Concomitant]
     Dosage: UNK
  14. CYMBALTA [Concomitant]
     Dosage: 60 MG, QD
  15. LOMOTIL [Concomitant]
     Dosage: UNK UNK, TID
  16. QVAR 40 [Concomitant]
     Dosage: 80 MUG, QD
  17. SINGULAIR [Concomitant]
     Dosage: 10 MG, QD
  18. ENBREL [Suspect]
     Indication: OSTEOARTHRITIS
  19. ACIDOPHILUS [Concomitant]
     Dosage: 10 MG, QD
  20. DILTIAZEM HCL CR [Concomitant]
     Dosage: 240 MG, QD
  21. HYOMAX [Concomitant]
     Dosage: 0.125 MG, UNK
  22. LORAZEPAM [Concomitant]
     Dosage: 1 MG, BID
  23. LORTAB [Concomitant]
     Dosage: UNK UNK, PRN
  24. METFORMIN HCL [Concomitant]
     Dosage: 1000 MG, BID
  25. SPIRONOLACTONE [Concomitant]
     Dosage: 25 MG, QD
  26. XOPENEX HFA [Concomitant]
     Dosage: 45 MUG, UNK
  27. ASPIRIN [Concomitant]
     Dosage: 81 MG, UNK
  28. TEMAZEPAM [Concomitant]
     Dosage: 15 MG, UNK

REACTIONS (4)
  - SWELLING FACE [None]
  - PAIN IN EXTREMITY [None]
  - OEDEMA PERIPHERAL [None]
  - JOINT SWELLING [None]
